FAERS Safety Report 13143998 (Version 2)
Quarter: 2017Q1

REPORT INFORMATION
  Report Type: Spontaneous
  Country: US (occurrence: US)
  Receive Date: 20170124
  Receipt Date: 20170215
  Transmission Date: 20170428
  Serious: No
  Sender: FDA-Public Use
  Company Number: US-BIOMARINAP-US-2017-112463

PATIENT
  Age: 10 Year
  Sex: Female
  Weight: 33.5 kg

DRUGS (1)
  1. KUVAN [Suspect]
     Active Substance: SAPROPTERIN DIHYDROCHLORIDE
     Indication: PRODUCT USED FOR UNKNOWN INDICATION
     Dosage: 700 MG, QD
     Route: 065
     Dates: start: 20161207, end: 20170206

REACTIONS (1)
  - Drug ineffective [Unknown]

NARRATIVE: CASE EVENT DATE: 20170206
